FAERS Safety Report 21436220 (Version 1)
Quarter: 2022Q4

REPORT INFORMATION
  Report Type: Spontaneous
  Country: US (occurrence: US)
  Receive Date: 20221010
  Receipt Date: 20221010
  Transmission Date: 20230113
  Serious: Yes (Other)
  Sender: FDA-Public Use
  Company Number: US-MYLANLABS-2022M1110598

PATIENT
  Age: 61 Year
  Sex: Female

DRUGS (6)
  1. ACETAMINOPHEN\PROPOXYPHENE HYDROCHLORIDE [Suspect]
     Active Substance: ACETAMINOPHEN\PROPOXYPHENE HYDROCHLORIDE
     Indication: Dysmenorrhoea
     Dosage: UNK
     Route: 065
  2. DIPHENHYDRAMINE [Suspect]
     Active Substance: DIPHENHYDRAMINE
     Indication: Drug withdrawal syndrome
     Dosage: UNK
     Route: 065
  3. PROPOXYPHENE HYDROCHLORIDE [Suspect]
     Active Substance: PROPOXYPHENE HYDROCHLORIDE
     Indication: Dysmenorrhoea
     Dosage: UNK
     Route: 065
  4. OXYCODONE [Suspect]
     Active Substance: OXYCODONE
     Indication: Musculoskeletal pain
     Dosage: 5 TO 10 MG EVERY 4 TO 6 HOURS
     Route: 065
  5. OXYCODONE [Suspect]
     Active Substance: OXYCODONE
     Dosage: UNK (DRUG REINITIATED AND DISCONTINUED LATER)
     Route: 065
  6. ACETAMINOPHEN\OXYCODONE HYDROCHLORIDE [Suspect]
     Active Substance: ACETAMINOPHEN\OXYCODONE HYDROCHLORIDE
     Indication: Musculoskeletal pain
     Dosage: 5 TO 10 MG EVERY 4 TO 6 HOURS
     Route: 065

REACTIONS (4)
  - Hallucination, visual [Recovered/Resolved]
  - Intentional product misuse [Recovered/Resolved]
  - Symptom masked [Recovered/Resolved]
  - Psychotic disorder [Recovered/Resolved]
